FAERS Safety Report 13105028 (Version 1)
Quarter: 2017Q1

REPORT INFORMATION
  Report Type: Spontaneous
  Country: US (occurrence: US)
  Receive Date: 20170111
  Receipt Date: 20170111
  Transmission Date: 20170428
  Serious: No
  Sender: FDA-Public Use
  Company Number: None

PATIENT
  Age: 88 Year
  Sex: Female
  Weight: 79.45 kg

DRUGS (12)
  1. HYOSCYAMINE SULFATE 0.125MG TABLETS [Suspect]
     Active Substance: HYOSCYAMINE SULFATE
     Indication: DIARRHOEA
     Dosage: 0.125 MG TABLETS 4 PILLS-1 BEFOR MEALS + 1 BEFOR BED MOUTH
     Route: 048
     Dates: start: 20160622, end: 20160707
  2. FAMOTIDINE. [Concomitant]
     Active Substance: FAMOTIDINE
  3. ALLOPURINOL. [Concomitant]
     Active Substance: ALLOPURINOL
  4. VALSARTAN. [Concomitant]
     Active Substance: VALSARTAN
  5. METOPROLOL. [Concomitant]
     Active Substance: METOPROLOL
  6. TYLENOL [Concomitant]
     Active Substance: ACETAMINOPHEN
  7. CITRUCEL [Concomitant]
     Active Substance: METHYLCELLULOSE (4000 MPA.S)
  8. HYOSCYAMINE SULFATE 0.125MG TABLETS [Suspect]
     Active Substance: HYOSCYAMINE SULFATE
     Indication: CONSTIPATION
     Dosage: 0.125 MG TABLETS 4 PILLS-1 BEFOR MEALS + 1 BEFOR BED MOUTH
     Route: 048
     Dates: start: 20160622, end: 20160707
  9. SIMVASTATIN. [Concomitant]
     Active Substance: SIMVASTATIN
  10. SYNTHROID [Concomitant]
     Active Substance: LEVOTHYROXINE SODIUM
  11. GLIMEPIRIDE. [Concomitant]
     Active Substance: GLIMEPIRIDE
  12. HYDROCHLOROTHIAIDE [Concomitant]

REACTIONS (5)
  - Balance disorder [None]
  - Somnolence [None]
  - Nausea [None]
  - Constipation [None]
  - Product use issue [None]

NARRATIVE: CASE EVENT DATE: 20160707
